FAERS Safety Report 4837019-2 (Version None)
Quarter: 2005Q4

REPORT INFORMATION
  Report Type: 
  Country: None (occurrence: None)
  Receive Date: 20051121
  Receipt Date: 20051108
  Transmission Date: 20060501
  Serious: Yes (Hospitalization, Other)
  Sender: FDA-Public Use
  Company Number: HQWYE501611NOV05

PATIENT
  Age: 25 Year
  Sex: Male

DRUGS (6)
  1. RAPAMUNE [Suspect]
     Indication: PROPHYLAXIS AGAINST TRANSPLANT REJECTION
     Dosage: 2 MG 1 X PER 1 DAY
     Route: 048
     Dates: start: 20040929, end: 20041221
  2. CYCLOSPORINE [Concomitant]
  3. RAPAMUNE [Suspect]
     Dosage: 3 MG 1X PER 1 DAY, 5 MG 1 X PER 1 DAY
     Route: 048
     Dates: start: 20041222, end: 20050108
  4. RAPAMUNE [Suspect]
     Dosage: 3 MG 1X PER 1 DAY, 5 MG 1 X PER 1 DAY
     Route: 048
     Dates: start: 20050110
  5. SULFAMETHOXAZOLE + TRIMETHOPRIM [Concomitant]
  6. PREDNISONE [Concomitant]

REACTIONS (3)
  - BLOOD CREATININE INCREASED [None]
  - DRUG INEFFECTIVE [None]
  - KIDNEY TRANSPLANT REJECTION [None]
